FAERS Safety Report 5261609-9 (Version None)
Quarter: 2007Q1

REPORT INFORMATION
  Report Type: 
  Country: None (occurrence: None)
  Receive Date: 20070307
  Receipt Date: 20070223
  Transmission Date: 20070707
  Serious: Yes (Death, Other)
  Sender: FDA-Public Use
  Company Number: 2007-00072

PATIENT
  Age: 63 Year
  Sex: Female

DRUGS (16)
  1. VELCADE [Suspect]
     Indication: MULTIPLE MYELOMA
     Dosage: 1.40 MG,  1.80 MG
     Dates: start: 20061218, end: 20061221
  2. VELCADE [Suspect]
     Indication: MULTIPLE MYELOMA
     Dosage: 1.40 MG,  1.80 MG
     Dates: start: 20061225, end: 20061228
  3. ITRACONAZOLE [Concomitant]
  4. DECADRON [Concomitant]
  5. MAGNESIUM OXIDE (MAGNESIUM OXIDE) [Concomitant]
  6. MALFA /JPN/ (MAGNESIUM HYDROXIDE, ALUMINIUM HYDROXIDE GEL) [Concomitant]
  7. FUNGUARD [Concomitant]
  8. OXYCONTIN [Concomitant]
  9. MOHRUS (KETOPROFEN) [Concomitant]
  10. MEROPEN (MEROPENEM) [Concomitant]
  11. NEUPOGEN [Concomitant]
  12. SOLU-CORTEF [Concomitant]
  13. VENOGLOBULIN [Concomitant]
  14. HEPARIN SODIUM [Concomitant]
  15. ATARAX [Concomitant]
  16. FAMOTIDINE [Concomitant]

REACTIONS (5)
  - BLOOD PRESSURE DECREASED [None]
  - BRONCHOPULMONARY ASPERGILLOSIS [None]
  - ILEUS [None]
  - INTERSTITIAL LUNG DISEASE [None]
  - PLATELET COUNT DECREASED [None]
